FAERS Safety Report 25230360 (Version 1)
Quarter: 2025Q2

REPORT INFORMATION
  Report Type: Spontaneous
  Country: FR (occurrence: FR)
  Receive Date: 20250423
  Receipt Date: 20250423
  Transmission Date: 20250716
  Serious: Yes (Other)
  Sender: LUNDBECK
  Company Number: None

PATIENT
  Age: 58 Year
  Sex: Female
  Weight: 86 kg

DRUGS (1)
  1. VYEPTI [Suspect]
     Active Substance: EPTINEZUMAB-JJMR
     Indication: Migraine
     Dosage: 100 MILLIGRAM
     Route: 041
     Dates: start: 202306

REACTIONS (1)
  - Secondary adrenocortical insufficiency [Not Recovered/Not Resolved]

NARRATIVE: CASE EVENT DATE: 20250101
